FAERS Safety Report 20011318 (Version 1)
Quarter: 2021Q4

REPORT INFORMATION
  Report Type: Spontaneous
  Country: US (occurrence: US)
  Receive Date: 20211029
  Receipt Date: 20211029
  Transmission Date: 20220303
  Serious: No
  Sender: FDA-Public Use
  Company Number: US-ELI_LILLY_AND_COMPANY-US202110012176

PATIENT
  Age: 24 Year
  Sex: Male

DRUGS (1)
  1. TALTZ [Suspect]
     Active Substance: IXEKIZUMAB
     Indication: Product used for unknown indication
     Dosage: 80 MG, EVERY 4 WEEKS
     Route: 058
     Dates: start: 202010

REACTIONS (2)
  - Injection site erythema [Unknown]
  - Injection site swelling [Unknown]

NARRATIVE: CASE EVENT DATE: 20210824
